FAERS Safety Report 17811383 (Version 1)
Quarter: 2020Q2

REPORT INFORMATION
  Report Type: Spontaneous
  Country: US (occurrence: US)
  Receive Date: 20200520
  Receipt Date: 20200520
  Transmission Date: 20200714
  Serious: Yes (Other)
  Sender: FDA-Public Use
  Company Number: None

PATIENT
  Age: 41 Year
  Sex: Female
  Weight: 109.32 kg

DRUGS (5)
  1. LYRICA [Concomitant]
     Active Substance: PREGABALIN
  2. PREGABALIN. [Suspect]
     Active Substance: PREGABALIN
     Indication: NEUROPATHY PERIPHERAL
     Dosage: ?          QUANTITY:1 CAPSULE;OTHER FREQUENCY:Q8 HRS;?
     Route: 048
     Dates: start: 20190823, end: 20190827
  3. PREGABALIN. [Suspect]
     Active Substance: PREGABALIN
     Indication: FIBROMYALGIA
     Dosage: ?          QUANTITY:1 CAPSULE;OTHER FREQUENCY:Q8 HRS;?
     Route: 048
     Dates: start: 20190823, end: 20190827
  4. ROBAXIN [Concomitant]
     Active Substance: METHOCARBAMOL
  5. NORCO [Concomitant]
     Active Substance: ACETAMINOPHEN\HYDROCODONE BITARTRATE

REACTIONS (2)
  - Product substitution issue [None]
  - Hypersensitivity [None]

NARRATIVE: CASE EVENT DATE: 20190823
